FAERS Safety Report 22755313 (Version 2)
Quarter: 2023Q4

REPORT INFORMATION
  Report Type: Report from Study
  Country: IN (occurrence: IN)
  Receive Date: 20230727
  Receipt Date: 20231103
  Transmission Date: 20240110
  Serious: Yes (Other)
  Sender: FDA-Public Use
  Company Number: IN-002147023-NVSC2023IN164360

PATIENT
  Age: 72 Year
  Sex: Female

DRUGS (2)
  1. RIBOCICLIB [Suspect]
     Active Substance: RIBOCICLIB
     Indication: Breast cancer
     Dosage: 600 MG, QD
     Route: 065
     Dates: start: 20220824
  2. RIBOCICLIB [Suspect]
     Active Substance: RIBOCICLIB
     Dosage: UNK
     Route: 048

REACTIONS (2)
  - Hypertension [Unknown]
  - Product dose omission issue [Unknown]

NARRATIVE: CASE EVENT DATE: 20220824
